FAERS Safety Report 6138032-8 (Version None)
Quarter: 2009Q1

REPORT INFORMATION
  Report Type: 
  Country: None (occurrence: None)
  Receive Date: 20090331
  Receipt Date: 20090130
  Transmission Date: 20090719
  Serious: Yes (Death)
  Sender: FDA-Public Use
  Company Number: US-TYCO HEALTHCARE/MALLINCKRODT-T200900504

PATIENT
  Age: 40 Year
  Sex: Male

DRUGS (6)
  1. ACETAMINOPHEN AND HYDROCODONE BITARTRATE [Suspect]
  2. COCAINE [Suspect]
  3. ETHANOL [Suspect]
  4. POTASSIUM CHLORIDE [Suspect]
  5. DIURETICS [Suspect]
  6. FENTANYL-25 [Suspect]

REACTIONS (4)
  - CARDIO-RESPIRATORY ARREST [None]
  - COMPLETED SUICIDE [None]
  - OVERDOSE [None]
  - UNRESPONSIVE TO STIMULI [None]
